FAERS Safety Report 24741258 (Version 1)
Quarter: 2024Q4

REPORT INFORMATION
  Report Type: Spontaneous
  Country: JO (occurrence: JO)
  Receive Date: 20241217
  Receipt Date: 20241217
  Transmission Date: 20250115
  Serious: Yes (Other)
  Sender: Steriscience PTE
  Company Number: JO-STERISCIENCE B.V.-2024-ST-002110

PATIENT
  Age: 18 Month
  Sex: Female
  Weight: 10 kg

DRUGS (3)
  1. ACETYLCYSTEINE [Suspect]
     Active Substance: ACETYLCYSTEINE
     Indication: Accidental overdose
     Dosage: INFUSION
     Route: 041
  2. ACETYLCYSTEINE [Suspect]
     Active Substance: ACETYLCYSTEINE
     Dosage: RE-INITIATION AT A SLOWER RATE
     Route: 041
  3. REVANIN [Concomitant]
     Indication: Product used for unknown indication
     Dosage: ACCIDENTALLY INGESTED 60 ML (3000MG; 300MG/KG) OF PARACETAMOL SUSPENSION
     Route: 065

REACTIONS (4)
  - Haematemesis [Unknown]
  - Condition aggravated [Unknown]
  - Flushing [Unknown]
  - Rash [Unknown]
